FAERS Safety Report 14215461 (Version 3)
Quarter: 2018Q2

REPORT INFORMATION
  Report Type: Spontaneous
  Country: US (occurrence: US)
  Receive Date: 20171122
  Receipt Date: 20180504
  Transmission Date: 20180711
  Serious: Yes (Other)
  Sender: FDA-Public Use
  Company Number: US-JNJFOC-20171004101

PATIENT
  Sex: Male
  Weight: 88.7 kg

DRUGS (8)
  1. GLIPIZIDE. [Concomitant]
     Active Substance: GLIPIZIDE
     Route: 065
  2. METFORMIN [Concomitant]
     Active Substance: METFORMIN HYDROCHLORIDE
     Route: 065
  3. DENOSUMAB [Concomitant]
     Active Substance: DENOSUMAB
     Route: 065
  4. SITAGLIPTIN [Concomitant]
     Active Substance: SITAGLIPTIN
     Route: 065
  5. ZYTIGA [Suspect]
     Active Substance: ABIRATERONE ACETATE
     Indication: PROSTATE CANCER
     Route: 048
     Dates: start: 201610, end: 20170909
  6. BACTROBAN [Concomitant]
     Active Substance: MUPIROCIN\MUPIROCIN CALCIUM
     Route: 065
  7. COZAAR [Concomitant]
     Active Substance: LOSARTAN POTASSIUM
     Route: 065
  8. LUPRON [Concomitant]
     Active Substance: LEUPROLIDE ACETATE
     Route: 065

REACTIONS (2)
  - Prostate cancer [Unknown]
  - Therapeutic response decreased [Unknown]
